FAERS Safety Report 8737686 (Version 3)
Quarter: 2013Q4

REPORT INFORMATION
  Report Type: Spontaneous
  Country: US (occurrence: US)
  Receive Date: 20120822
  Receipt Date: 20131101
  Transmission Date: 20140711
  Serious: No
  Sender: FDA-Public Use
  Company Number: US-009507513-1207USA009050

PATIENT
  Age: 27 Year
  Sex: Female

DRUGS (1)
  1. IMPLANON [Suspect]
     Dosage: UNK
     Dates: start: 2009

REACTIONS (4)
  - Nuclear magnetic resonance imaging abnormal [Unknown]
  - Incorrect drug administration duration [Unknown]
  - Complication of device insertion [Unknown]
  - Medical device complication [Unknown]
